FAERS Safety Report 10879925 (Version 3)
Quarter: 2015Q2

REPORT INFORMATION
  Report Type: Spontaneous
  Country: US (occurrence: US)
  Receive Date: 20150302
  Receipt Date: 20150410
  Transmission Date: 20150821
  Serious: Yes (Other)
  Sender: FDA-Public Use
  Company Number: US-PFIZER INC-2015068061

PATIENT
  Age: 94 Year
  Sex: Female
  Weight: 52.15 kg

DRUGS (2)
  1. XALATAN [Suspect]
     Active Substance: LATANOPROST
     Indication: GLAUCOMA
     Dosage: 1 EYE DROP ONE TIME AT NIGHT)
     Route: 047
  2. TIMOLOL MALEATE. [Concomitant]
     Active Substance: TIMOLOL MALEATE
     Dosage: 2 DROPS IN EACH EYE, 2X/DAY
     Route: 047

REACTIONS (2)
  - Lacrimal disorder [Unknown]
  - Dry eye [Not Recovered/Not Resolved]
